FAERS Safety Report 4777316-2 (Version None)
Quarter: 2005Q3

REPORT INFORMATION
  Report Type: 
  Country: None (occurrence: None)
  Receive Date: 20050915
  Receipt Date: 20050830
  Transmission Date: 20060218
  Serious: Yes (Other)
  Sender: FDA-Public Use
  Company Number: USA050496833

PATIENT
  Age: 76 Year
  Sex: Female

DRUGS (16)
  1. EVISTA [Suspect]
     Indication: BONE DISORDER
     Dosage: 60 MG DAY
     Dates: start: 19990101
  2. PLAVIX [Concomitant]
  3. DIOVAN [Concomitant]
  4. FOLGARD [Concomitant]
  5. SYNTHROID [Concomitant]
  6. NIACIN [Concomitant]
  7. NEPROCAPS [Concomitant]
  8. FOSAMAX [Concomitant]
  9. COREG [Concomitant]
  10. HYDRALAZINE [Concomitant]
  11. CATAPRES [Concomitant]
  12. DEMADEX [Concomitant]
  13. CALCIUM GLUCONATE [Concomitant]
  14. COLACE (DOCUSATE SODIUM) [Concomitant]
  15. NIASPAN [Concomitant]
  16. PHOSLO [Concomitant]

REACTIONS (2)
  - HYPERTENSIVE NEPHROPATHY [None]
  - RENAL FAILURE CHRONIC [None]
